FAERS Safety Report 4953951-3 (Version None)
Quarter: 2006Q1

REPORT INFORMATION
  Report Type: 
  Country: None (occurrence: None)
  Receive Date: 20060327
  Receipt Date: 20040901
  Transmission Date: 20060701
  Serious: Yes (Other)
  Sender: FDA-Public Use
  Company Number: DE-BRISTOL-MYERS SQUIBB COMPANY-13308804

PATIENT
  Age: 42 Year
  Sex: Male
  Weight: 65 kg

DRUGS (17)
  1. REYATAZ [Suspect]
     Indication: HIV INFECTION
     Dates: start: 20030901
  2. ZERIT [Suspect]
     Indication: HIV INFECTION
     Dates: start: 19970901
  3. VIDEX [Suspect]
     Indication: HIV INFECTION
     Dates: start: 19970901
  4. RETROVIR [Suspect]
     Indication: HIV INFECTION
     Dates: start: 19970901
  5. EPIVIR [Suspect]
     Indication: HIV INFECTION
     Dates: start: 19970901
  6. NEVIRAPINE [Suspect]
     Indication: HIV INFECTION
     Dates: start: 19970901
  7. RITONAVIR [Suspect]
     Indication: HIV INFECTION
     Dates: start: 19980101
  8. SAQUINAVIR [Suspect]
     Indication: HIV INFECTION
     Dates: start: 19980101
  9. NELFINAVIR [Suspect]
     Indication: HIV INFECTION
     Dates: start: 19980701
  10. TENOFOVIR [Suspect]
     Indication: HIV INFECTION
     Dates: start: 20030901
  11. LAMIVUDINE [Suspect]
     Indication: HIV INFECTION
     Dates: start: 20030901
  12. PROTAPHANE [Concomitant]
     Indication: DIABETES MELLITUS
     Dosage: 4-0-4 IU PER DAY RETARDED; AUG-2004 10-12 IU
     Dates: start: 19970901
  13. ACTRAPID [Concomitant]
     Indication: DIABETES MELLITUS
     Dosage: PREPRANDIAL BLOOD SUGAR }120 MG/DL; AUG-2004 3X4-8 IU PER DAY
  14. INSULIN [Concomitant]
     Indication: DIABETES MELLITUS
     Dates: start: 19981001
  15. VALTREX [Concomitant]
     Indication: HERPES ZOSTER
     Dates: start: 19981001
  16. CO-TRIMOXAZOLE [Concomitant]
     Indication: PNEUMONIA LEGIONELLA
     Dosage: 3X3 VIALS
     Dates: start: 20000101
  17. PRAVASIN [Concomitant]
     Indication: HYPERLIPIDAEMIA
     Dates: start: 20030901

REACTIONS (13)
  - DIABETES MELLITUS [None]
  - DRUG RESISTANCE [None]
  - FACIAL WASTING [None]
  - FOLLICULITIS [None]
  - HERPES ZOSTER [None]
  - LIPIDS INCREASED [None]
  - LIPOHYPERTROPHY [None]
  - LYMPHADENOPATHY [None]
  - MALAISE [None]
  - MICROALBUMINURIA [None]
  - PNEUMONIA LEGIONELLA [None]
  - TRANSAMINASES INCREASED [None]
  - WEIGHT DECREASED [None]
